FAERS Safety Report 11929629 (Version 1)
Quarter: 2016Q1

REPORT INFORMATION
  Report Type: Spontaneous
  Country: US (occurrence: None)
  Receive Date: 20160119
  Receipt Date: 20160119
  Transmission Date: 20160526
  Serious: Yes (Disabling)
  Sender: FDA-Public Use
  Company Number: None

PATIENT
  Age: 71 Year
  Sex: Male
  Weight: 99.79 kg

DRUGS (14)
  1. FISH OIL [Concomitant]
     Active Substance: FISH OIL
  2. CIPROFLOXACIN HCL 500 MG GENERIC [Suspect]
     Active Substance: CIPROFLOXACIN HYDROCHLORIDE
     Indication: PROSTATITIS
     Dosage: 1 PILL TWICE DAILY TAKEN BY MOUTH
     Route: 048
     Dates: start: 20151114, end: 20160116
  3. METFORMIN [Concomitant]
     Active Substance: METFORMIN HYDROCHLORIDE
  4. COREG [Concomitant]
     Active Substance: CARVEDILOL
  5. LANTUS [Concomitant]
     Active Substance: INSULIN GLARGINE
  6. VITAMINS [Concomitant]
     Active Substance: VITAMINS
  7. BYDUREON [Concomitant]
     Active Substance: EXENATIDE
  8. TAMSULOSIN [Concomitant]
     Active Substance: TAMSULOSIN
  9. CA/MG [Concomitant]
  10. ALPHA LIPOIC ACID [Concomitant]
     Active Substance: .ALPHA.-LIPOIC ACID
  11. COQ [Concomitant]
  12. CARVEDILOL. [Concomitant]
     Active Substance: CARVEDILOL
  13. VITAMIN D [Concomitant]
     Active Substance: CHOLECALCIFEROL
  14. PRAHVASTATIN [Concomitant]

REACTIONS (2)
  - Tendonitis [None]
  - Pain [None]

NARRATIVE: CASE EVENT DATE: 20151114
